FAERS Safety Report 22188694 (Version 4)
Quarter: 2023Q4

REPORT INFORMATION
  Report Type: Report from Study
  Country: RU (occurrence: RU)
  Receive Date: 20230409
  Receipt Date: 20231102
  Transmission Date: 20240110
  Serious: Yes (Life-Threatening, Hospitalization)
  Sender: FDA-Public Use
  Company Number: RU-002147023-NVSC2023RU081247

PATIENT
  Age: 40 Year
  Sex: Female
  Weight: 80 kg

DRUGS (5)
  1. PIQRAY [Suspect]
     Active Substance: ALPELISIB
     Indication: Breast cancer metastatic
     Dosage: 300 MG, QD
     Route: 048
     Dates: start: 20221208, end: 20221230
  2. PIQRAY [Suspect]
     Active Substance: ALPELISIB
     Dosage: 200 MG
     Route: 048
     Dates: start: 20230113, end: 20230217
  3. FULVESTRANT [Concomitant]
     Active Substance: FULVESTRANT
     Indication: Product used for unknown indication
     Dosage: 500 MG (ON DAYS 1,15,29; THEREAFTER EVERY 28 DAYS)
     Route: 030
     Dates: start: 20221208, end: 20230217
  4. BUSERELIN [Concomitant]
     Active Substance: BUSERELIN
     Indication: Product used for unknown indication
     Dosage: 3.75 MG (EVERY 28 DAYS)
     Route: 030
     Dates: start: 20221201
  5. DENOSUMAB [Concomitant]
     Active Substance: DENOSUMAB
     Indication: Product used for unknown indication
     Dosage: 12 MG (EVERY 28 DAYS)
     Route: 058
     Dates: start: 20221201

REACTIONS (3)
  - Angioedema [Recovered/Resolved]
  - Rash [Recovered/Resolved]
  - Hyperglycaemia [Recovered/Resolved]

NARRATIVE: CASE EVENT DATE: 20221230
